FAERS Safety Report 19890733 (Version 1)
Quarter: 2021Q3

REPORT INFORMATION
  Report Type: Spontaneous
  Country: NL (occurrence: NL)
  Receive Date: 20210927
  Receipt Date: 20210927
  Transmission Date: 20211014
  Serious: Yes (Other)
  Sender: FDA-Public Use
  Company Number: NL-PFIZER INC-202101203312

PATIENT
  Sex: Female
  Weight: 76.8 kg

DRUGS (7)
  1. RISEDRONIC ACID [Concomitant]
     Active Substance: RISEDRONIC ACID
     Dosage: FILM?COATED TABLET, 35 MG (MILLIGRAMS)
  2. CANNABIS [Concomitant]
     Active Substance: CANNABIS SATIVA SUBSP. INDICA TOP
     Dosage: CBD/THC OIL
  3. CARBASALAATCALCIUM [Concomitant]
     Active Substance: CARBASPIRIN CALCIUM
     Dosage: SACHET (POWDER), 100 MG (MILLIGRAMS)
  4. LEVETIRACETAM. [Concomitant]
     Active Substance: LEVETIRACETAM
     Dosage: FILM?COATED TABLET, 500 MG (MILLIGRAMS)
  5. FULVESTRANT. [Suspect]
     Active Substance: FULVESTRANT
     Indication: BREAST CANCER
     Dosage: EVERY 4 WEEKS 2 INJECTIONS, START OF TREATMENT ON DAY 1, 15 AND 29
     Dates: start: 20210707
  6. PALBOCICLIB [Suspect]
     Active Substance: PALBOCICLIB
     Indication: BREAST CANCER FEMALE
     Dosage: 1D1T FOR 3 WEEKS AND 1 WEEK STOP
     Dates: start: 20210708
  7. CALCI CHEW D3 [Concomitant]
     Active Substance: CALCIUM CARBONATE\CHOLECALCIFEROL
     Dosage: CHEWABLE TABLET, 2.5 G (GRAMS)/800 UNITS

REACTIONS (3)
  - Depressed level of consciousness [Recovering/Resolving]
  - Epilepsy [Recovering/Resolving]
  - Seizure [Recovering/Resolving]
